FAERS Safety Report 4687072-4 (Version None)
Quarter: 2005Q2

REPORT INFORMATION
  Report Type: 
  Country: None (occurrence: None)
  Receive Date: 20050608
  Receipt Date: 20050602
  Transmission Date: 20051028
  Serious: Yes (Other)
  Sender: FDA-Public Use
  Company Number: SU-2005-003628

PATIENT
  Sex: Female
  Weight: 149.687 kg

DRUGS (5)
  1. BENICAR [Suspect]
     Indication: HYPERTENSION
     Dosage: MG PO
     Route: 048
     Dates: start: 20030611
  2. DEMULEN 1/35-21 [Concomitant]
  3. ALDACTAZIDE [Concomitant]
  4. GLUCOPHAGE [Concomitant]
  5. SYNTHROID [Concomitant]

REACTIONS (4)
  - DRUG EXPOSURE DURING PREGNANCY [None]
  - PREGNANCY [None]
  - PREMATURE LABOUR [None]
  - TREATMENT NONCOMPLIANCE [None]
